FAERS Safety Report 18123190 (Version 2)
Quarter: 2020Q3

REPORT INFORMATION
  Report Type: Report from Study
  Country: US (occurrence: US)
  Receive Date: 20200807
  Receipt Date: 20200908
  Transmission Date: 20201103
  Serious: Yes (Hospitalization)
  Sender: FDA-Public Use
  Company Number: US-ADAMAS PHARMA, LLC-2020ADA01277

PATIENT
  Age: 62 Year
  Sex: Male

DRUGS (13)
  1. DUOPA [Suspect]
     Active Substance: CARBIDOPA\LEVODOPA
     Dosage: UNK
     Dates: start: 20200707
  2. ENTACAPONE. [Concomitant]
     Active Substance: ENTACAPONE
  3. VITAMIN D [Concomitant]
     Active Substance: VITAMIN D NOS
  4. GOCOVRI [Suspect]
     Active Substance: AMANTADINE
     Dosage: 137 MG, 1X/DAY, AT BEDTIME
     Route: 048
     Dates: start: 202006, end: 20200628
  5. VITAMIN C [Concomitant]
     Active Substance: ASCORBIC ACID
  6. SINEMET CR [Concomitant]
     Active Substance: CARBIDOPA\LEVODOPA
  7. SULFASALAZINE. [Concomitant]
     Active Substance: SULFASALAZINE
  8. VITAMIN B1 [Concomitant]
     Active Substance: THIAMINE HYDROCHLORIDE
  9. GOCOVRI [Suspect]
     Active Substance: AMANTADINE
     Indication: DYSKINESIA
     Dosage: 137 MG, 1X/DAY, NIGHTLY
     Route: 048
     Dates: start: 20190724, end: 20200518
  10. DUOPA [Suspect]
     Active Substance: CARBIDOPA\LEVODOPA
     Dosage: UNK
     Dates: start: 201912, end: 20200628
  11. PROBIOTIC [Concomitant]
     Active Substance: PROBIOTICS NOS
  12. VITAMIN B12 [Concomitant]
     Active Substance: CYANOCOBALAMIN
  13. GOCOVRI [Suspect]
     Active Substance: AMANTADINE
     Dosage: 137 MG, 1X/DAY, NIGHTLY
     Route: 048
     Dates: start: 202006, end: 202006

REACTIONS (9)
  - Urosepsis [Recovering/Resolving]
  - Urinary tract infection [Not Recovered/Not Resolved]
  - Balance disorder [Unknown]
  - Gait disturbance [Not Recovered/Not Resolved]
  - Gastrointestinal stoma complication [Unknown]
  - Respiratory failure [Recovering/Resolving]
  - Dyskinesia [Unknown]
  - Urinary retention [Not Recovered/Not Resolved]
  - Drug ineffective [Recovered/Resolved]

NARRATIVE: CASE EVENT DATE: 20190724
